FAERS Safety Report 21274291 (Version 5)
Quarter: 2022Q4

REPORT INFORMATION
  Report Type: Report from Study
  Country: CO (occurrence: CO)
  Receive Date: 20220831
  Receipt Date: 20221202
  Transmission Date: 20230112
  Serious: Yes (Hospitalization)
  Sender: FDA-Public Use
  Company Number: CO-ABBVIE-22K-036-4521961-00

PATIENT
  Age: 56 Year
  Sex: Female
  Weight: 56 kg

DRUGS (1)
  1. ZEMPLAR [Suspect]
     Active Substance: PARICALCITOL
     Indication: Hyperparathyroidism secondary
     Dosage: POSTDIALYSIS
     Route: 042
     Dates: start: 20220805

REACTIONS (5)
  - Complication associated with device [Recovering/Resolving]
  - Pain [Recovering/Resolving]
  - Dialysis related complication [Recovering/Resolving]
  - Swelling [Recovering/Resolving]
  - Purulent discharge [Recovering/Resolving]

NARRATIVE: CASE EVENT DATE: 20220823
